FAERS Safety Report 25773320 (Version 1)
Quarter: 2025Q3

REPORT INFORMATION
  Report Type: Spontaneous
  Country: EU (occurrence: EU)
  Receive Date: 20250908
  Receipt Date: 20250908
  Transmission Date: 20251020
  Serious: Yes (Other)
  Sender: BRISTOL-MYERS SQUIBB COMPANY
  Company Number: EU-STADA-01437769

PATIENT
  Age: 65 Year
  Sex: Female

DRUGS (3)
  1. DASATINIB [Suspect]
     Active Substance: DASATINIB
     Indication: B precursor type acute leukaemia
     Dates: start: 202307
  2. DASATINIB [Suspect]
     Active Substance: DASATINIB
     Dates: start: 2023
  3. DEXAMETHASONE [Concomitant]
     Active Substance: DEXAMETHASONE
     Indication: B precursor type acute leukaemia
     Dosage: INDUCTION THERAPY
     Dates: start: 202307

REACTIONS (1)
  - Gastrointestinal toxicity [Unknown]
